FAERS Safety Report 15638029 (Version 1)
Quarter: 2018Q4

REPORT INFORMATION
  Report Type: Spontaneous
  Country: US (occurrence: US)
  Receive Date: 20181120
  Receipt Date: 20181120
  Transmission Date: 20190205
  Serious: No
  Sender: FDA-Public Use
  Company Number: US-JNJFOC-20180726619

PATIENT
  Sex: Female

DRUGS (11)
  1. DORZOLAMIDE [Concomitant]
     Active Substance: DORZOLAMIDE
  2. LATANOPROST. [Concomitant]
     Active Substance: LATANOPROST
  3. IMBRUVICA [Suspect]
     Active Substance: IBRUTINIB
     Indication: CHRONIC LYMPHOCYTIC LEUKAEMIA
     Dosage: 420 MG, QD
     Route: 048
     Dates: start: 201804
  4. IMBRUVICA [Concomitant]
     Active Substance: IBRUTINIB
     Indication: CHRONIC LYMPHOCYTIC LEUKAEMIA
     Dosage: 420 MG, QD
     Route: 048
     Dates: end: 201804
  5. ACYCLOVIR. [Concomitant]
     Active Substance: ACYCLOVIR
     Dosage: UNK
  6. HYDROCHLOROTHIAZIDE. [Concomitant]
     Active Substance: HYDROCHLOROTHIAZIDE
  7. VITAMIN D [Concomitant]
     Active Substance: CHOLECALCIFEROL
  8. DENOSUMAB [Concomitant]
     Active Substance: DENOSUMAB
  9. VITAMIN B12 [Concomitant]
     Active Substance: CYANOCOBALAMIN
  10. MIRTAZAPINE. [Concomitant]
     Active Substance: MIRTAZAPINE
  11. TOCOPHEROL [Concomitant]
     Active Substance: TOCOPHEROL

REACTIONS (1)
  - Arthralgia [Unknown]

NARRATIVE: CASE EVENT DATE: 2018
